FAERS Safety Report 5702439-0 (Version None)
Quarter: 2008Q2

REPORT INFORMATION
  Report Type: 
  Country: None (occurrence: None)
  Receive Date: 20080411
  Receipt Date: 20080401
  Transmission Date: 20081010
  Serious: Yes (Other)
  Sender: FDA-Public Use
  Company Number: PHHY2008BR04542

PATIENT
  Age: 22 Year
  Sex: Male

DRUGS (4)
  1. TRILEPTAL [Suspect]
     Dosage: 300 MG
  2. TEGRETOL [Suspect]
     Dosage: 3 TAB/DAY
  3. TEGRETOL [Suspect]
     Dosage: 200 MG/DAY
  4. TEGRETOL [Suspect]
     Dosage: 2 TAB/DAY

REACTIONS (6)
  - HYPOAESTHESIA FACIAL [None]
  - MOUTH INJURY [None]
  - MUSCLE SPASMS [None]
  - NERVOUSNESS [None]
  - SOMNOLENCE [None]
  - SPEECH DISORDER [None]
